FAERS Safety Report 9264425 (Version 1)
Quarter: 2013Q2

REPORT INFORMATION
  Report Type: Spontaneous
  Country: None (occurrence: US)
  Receive Date: 20130430
  Receipt Date: 20130430
  Transmission Date: 20140414
  Serious: Yes (Other)
  Sender: FDA-Public Use
  Company Number: US-ALLERGAN-1305881US

PATIENT
  Age: 35 Year
  Sex: Female

DRUGS (2)
  1. BOTOX? [Suspect]
     Indication: HYPERHIDROSIS
     Dosage: 60 UNITS, SINGLE
     Route: 030
     Dates: start: 20130418, end: 20130418
  2. BOTOX? [Suspect]
     Dosage: 120 UNITS, SINGLE
     Route: 030
     Dates: start: 20130412, end: 20130412

REACTIONS (7)
  - Vaginal haemorrhage [Unknown]
  - Off label use [Unknown]
  - Off label use [Unknown]
  - Dyspnoea [Unknown]
  - Dysphagia [Unknown]
  - Eyelid ptosis [Unknown]
  - Headache [Unknown]
